FAERS Safety Report 8034669-X (Version None)
Quarter: 2012Q1

REPORT INFORMATION
  Report Type: 
  Country: None (occurrence: None)
  Receive Date: 20120111
  Receipt Date: 20120103
  Transmission Date: 20120608
  Serious: Yes (Other)
  Sender: FDA-Public Use
  Company Number: US-BRISTOL-MYERS SQUIBB COMPANY-16327447

PATIENT
  Age: 20 Year
  Sex: Male
  Weight: 61 kg

DRUGS (4)
  1. ABILIFY [Suspect]
     Indication: BIPOLAR DISORDER
     Dosage: SECOND DOSE ON 29DEC11
     Dates: start: 20111228
  2. CLONAZEPAM [Concomitant]
  3. EFFEXOR [Suspect]
  4. ABILIFY [Suspect]
     Indication: DEPRESSION
     Dosage: SECOND DOSE ON 29DEC11
     Dates: start: 20111228

REACTIONS (9)
  - INSOMNIA [None]
  - HYPERTHERMIA [None]
  - MUSCLE TIGHTNESS [None]
  - HYPERHIDROSIS [None]
  - FEELING ABNORMAL [None]
  - ALTERED STATE OF CONSCIOUSNESS [None]
  - POSTURE ABNORMAL [None]
  - TREMOR [None]
  - DYSPNOEA [None]
